FAERS Safety Report 9057367 (Version 1)
Quarter: 2013Q1

REPORT INFORMATION
  Report Type: Spontaneous
  Country: GB (occurrence: GB)
  Receive Date: 20130204
  Receipt Date: 20130204
  Transmission Date: 20140127
  Serious: Yes (Hospitalization, Other)
  Sender: FDA-Public Use
  Company Number: PHHY2012GB112025

PATIENT
  Age: 48 Year
  Sex: Female

DRUGS (3)
  1. AMISULPRIDE [Suspect]
  2. VALPROIC ACID [Suspect]
  3. ZAPONEX [Suspect]
     Route: 048
     Dates: start: 20070309, end: 20121113

REACTIONS (5)
  - Neutropenia [Recovering/Resolving]
  - Schizophrenia [Unknown]
  - Treatment noncompliance [Unknown]
  - Leukopenia [Recovering/Resolving]
  - Neutrophil count decreased [Recovering/Resolving]
